FAERS Safety Report 12825846 (Version 1)
Quarter: 2016Q4

REPORT INFORMATION
  Report Type: Spontaneous
  Country: US (occurrence: US)
  Receive Date: 20161007
  Receipt Date: 20161007
  Transmission Date: 20170207
  Serious: No
  Sender: FDA-Public Use
  Company Number: US-WATSON-2015-12909

PATIENT
  Age: 57 Year
  Sex: Male

DRUGS (12)
  1. ASA [Concomitant]
     Active Substance: ASPIRIN
     Indication: MYOCARDIAL INFARCTION
     Dosage: 81 MG, QPM
     Route: 048
  2. FENTANYL-50 (WATSON LABORATORIES) [Suspect]
     Active Substance: FENTANYL
     Dosage: 50 MCG/HR, Q72H
     Route: 062
     Dates: start: 2013
  3. EFFEXOR [Concomitant]
     Active Substance: VENLAFAXINE HYDROCHLORIDE
     Indication: DEPRESSION
     Dosage: 75 MG, DAILY
     Route: 048
  4. BENTYL [Concomitant]
     Active Substance: DICYCLOMINE HYDROCHLORIDE
     Indication: GASTROINTESTINAL PAIN
     Dosage: 20 MG, DAILY
     Route: 048
  5. ZANAFLEX [Concomitant]
     Active Substance: TIZANIDINE HYDROCHLORIDE
     Indication: MUSCLE SPASMS
     Dosage: 4 MG, PRN
     Route: 048
  6. CARDIZEM [Concomitant]
     Active Substance: DILTIAZEM HYDROCHLORIDE
     Indication: HYPERTENSION
     Dosage: 180 MG, DAILY
     Route: 048
  7. VICODIN [Concomitant]
     Active Substance: ACETAMINOPHEN\HYDROCODONE BITARTRATE
     Indication: PAIN
     Dosage: 5/325MG, PRN
     Route: 048
  8. AMITRIPTYLINE [Concomitant]
     Active Substance: AMITRIPTYLINE
     Indication: SLEEP DISORDER
     Dosage: 75 MG, QPM
     Route: 048
  9. FENTANYL-50 (WATSON LABORATORIES) [Suspect]
     Active Substance: FENTANYL
     Dosage: 50 MCG/HR, Q72H
     Route: 062
     Dates: start: 2013
  10. LISINOPRIL. [Concomitant]
     Active Substance: LISINOPRIL
     Indication: BLOOD PRESSURE MEASUREMENT
     Dosage: 20 MG, QPM
     Route: 048
  11. ZOCOR [Concomitant]
     Active Substance: SIMVASTATIN
     Indication: BLOOD CHOLESTEROL
     Dosage: 40 MG, DAILY
     Route: 048
  12. FENTANYL-50 (WATSON LABORATORIES) [Suspect]
     Active Substance: FENTANYL
     Indication: PAIN
     Dosage: 50 MCG/HR, Q72H
     Route: 062
     Dates: start: 2013

REACTIONS (3)
  - Pain [Recovered/Resolved]
  - Muscle spasms [Unknown]
  - Drug ineffective [Recovered/Resolved]

NARRATIVE: CASE EVENT DATE: 20150605
